FAERS Safety Report 8248804-1 (Version None)
Quarter: 2012Q2

REPORT INFORMATION
  Report Type: 
  Country: None (occurrence: None)
  Receive Date: 20120401
  Receipt Date: 20120322
  Transmission Date: 20120825
  Serious: Yes (Other)
  Sender: FDA-Public Use
  Company Number: PHHY2012BR025598

PATIENT
  Sex: Female

DRUGS (3)
  1. TRAVATAN [Suspect]
  2. TIMOLOL MALEATE [Suspect]
  3. LATANOPROST [Concomitant]

REACTIONS (4)
  - GLAUCOMA [None]
  - INTRAOCULAR PRESSURE INCREASED [None]
  - CATARACT [None]
  - VISUAL IMPAIRMENT [None]
